FAERS Safety Report 21063388 (Version 10)
Quarter: 2023Q2

REPORT INFORMATION
  Report Type: Report from Study
  Country: US (occurrence: US)
  Receive Date: 20220711
  Receipt Date: 20230629
  Transmission Date: 20230721
  Serious: No
  Sender: FDA-Public Use
  Company Number: US-NOVARTISTESTPH-NVSC2022US155852

PATIENT
  Sex: Female

DRUGS (2)
  1. COSENTYX [Suspect]
     Active Substance: SECUKINUMAB
     Indication: Psoriasis
     Dosage: 150 MG (SINCE 18 MAY OF UNKNOWN YEAR)
     Route: 065
  2. COSENTYX [Suspect]
     Active Substance: SECUKINUMAB
     Dosage: 150 MG, QMO
     Route: 058

REACTIONS (12)
  - Skin lesion [Not Recovered/Not Resolved]
  - COVID-19 [Recovered/Resolved]
  - Headache [Unknown]
  - Fatigue [Unknown]
  - Illness [Unknown]
  - Peripheral swelling [Unknown]
  - Nail growth abnormal [Unknown]
  - Thyroid disorder [Unknown]
  - Madarosis [Unknown]
  - Rash macular [Not Recovered/Not Resolved]
  - Tenderness [Not Recovered/Not Resolved]
  - Pain [Unknown]
